FAERS Safety Report 24140858 (Version 1)
Quarter: 2024Q3

REPORT INFORMATION
  Report Type: Spontaneous
  Country: US (occurrence: None)
  Receive Date: 20240725
  Receipt Date: 20240725
  Transmission Date: 20241016
  Serious: Yes (Hospitalization)
  Sender: Public
  Company Number: None

PATIENT
  Age: 15 Year
  Sex: Female
  Weight: 97.8 kg

DRUGS (1)
  1. DAPSONE [Suspect]
     Active Substance: DAPSONE
     Indication: Acne
     Dosage: 50 MG/MG DAILY ORAL
     Route: 048
     Dates: start: 20240705, end: 20240724

REACTIONS (9)
  - Chest pain [None]
  - Dyspnoea [None]
  - Hypoxia [None]
  - Dizziness [None]
  - Dizziness [None]
  - Oxygen saturation decreased [None]
  - Cyanosis [None]
  - Pallor [None]
  - Blood methaemoglobin present [None]

NARRATIVE: CASE EVENT DATE: 20240723
